FAERS Safety Report 4917414-3 (Version None)
Quarter: 2006Q1

REPORT INFORMATION
  Report Type: 
  Country: None (occurrence: None)
  Receive Date: 20060221
  Receipt Date: 20050930
  Transmission Date: 20060701
  Serious: Yes (Hospitalization, Other)
  Sender: FDA-Public Use
  Company Number: PHHO2005CA15495

PATIENT
  Age: 48 Year
  Sex: Female

DRUGS (2)
  1. SANDOSTATIN LAR [Suspect]
     Indication: ACROMEGALY
     Dosage: 20MG EVERY 4 WEEKS
     Dates: start: 20010120
  2. CORTEF [Concomitant]

REACTIONS (5)
  - BLOOD PRESSURE INCREASED [None]
  - BONE PAIN [None]
  - CHEST PAIN [None]
  - GASTROOESOPHAGEAL REFLUX DISEASE [None]
  - HYPOAESTHESIA [None]
